FAERS Safety Report 18062027 (Version 1)
Quarter: 2020Q3

REPORT INFORMATION
  Report Type: Spontaneous
  Country: FR (occurrence: FR)
  Receive Date: 20200723
  Receipt Date: 20200723
  Transmission Date: 20201103
  Serious: Yes (Other)
  Sender: FDA-Public Use
  Company Number: FR-IPCA LABORATORIES LIMITED-IPC-2020-FR-002326

PATIENT

DRUGS (2)
  1. WARFARIN [Suspect]
     Active Substance: WARFARIN
     Indication: ANTICOAGULANT THERAPY
  2. WARFARIN [Suspect]
     Active Substance: WARFARIN
     Indication: CEREBRAL VENOUS THROMBOSIS
     Dosage: UNK
     Route: 065
     Dates: start: 201811

REACTIONS (4)
  - Haematoma muscle [Unknown]
  - International normalised ratio increased [Unknown]
  - Anaemia [Unknown]
  - Overdose [Unknown]
